FAERS Safety Report 20836687 (Version 1)
Quarter: 2022Q2

REPORT INFORMATION
  Report Type: Spontaneous
  Country: US (occurrence: None)
  Receive Date: 20220517
  Receipt Date: 20220517
  Transmission Date: 20220721
  Serious: Yes (Other)
  Sender: FDA-Public Use
  Company Number: US-Unichem Pharmaceuticals (USA) Inc-UCM202205-000434

PATIENT
  Age: 31 Year
  Sex: Female

DRUGS (8)
  1. AMIODARONE HYDROCHLORIDE [Suspect]
     Active Substance: AMIODARONE HYDROCHLORIDE
     Indication: Atrial flutter
     Dosage: 1 MG/MIN FOR 5 HOURS AND 33 MINUTES
     Route: 040
  2. MIDAZOLAM [Concomitant]
     Active Substance: MIDAZOLAM
     Indication: Withdrawal syndrome
     Dosage: UNKNOWN
  3. MIDAZOLAM [Concomitant]
     Active Substance: MIDAZOLAM
     Indication: Alcohol withdrawal syndrome
  4. LORAZEPAM [Concomitant]
     Active Substance: LORAZEPAM
     Indication: Anxiety
     Dosage: UNKNOWN
  5. DIPRIVAN [Concomitant]
     Active Substance: PROPOFOL
     Indication: Sedation
     Dosage: UNKNOWN
  6. DIPRIVAN [Concomitant]
     Active Substance: PROPOFOL
     Indication: Withdrawal syndrome
  7. FENTANYL [Concomitant]
     Active Substance: FENTANYL
     Indication: Sedation
     Dosage: UNKNOWN
  8. PHENYLEPHRINE [Concomitant]
     Active Substance: PHENYLEPHRINE HYDROCHLORIDE
     Indication: Product used for unknown indication
     Dosage: UNKNOWN

REACTIONS (1)
  - Acute hepatic failure [Recovering/Resolving]
